FAERS Safety Report 18308448 (Version 2)
Quarter: 2020Q4

REPORT INFORMATION
  Report Type: Spontaneous
  Country: US (occurrence: US)
  Receive Date: 20200924
  Receipt Date: 20201111
  Transmission Date: 20210113
  Serious: No
  Sender: FDA-Public Use
  Company Number: US-PFIZER INC-2020363692

PATIENT
  Age: 10 Year
  Sex: Male
  Weight: 63.5 kg

DRUGS (1)
  1. GENOTROPIN [Suspect]
     Active Substance: SOMATROPIN
     Indication: ADRENAL DISORDER
     Dosage: 1.2 MG, DAILY
     Dates: start: 2016

REACTIONS (8)
  - Product use in unapproved indication [Unknown]
  - Device power source issue [Unknown]
  - Poor quality device used [Unknown]
  - Injection site pain [Unknown]
  - Off label use [Unknown]
  - Needle issue [Unknown]
  - Wrong technique in device usage process [Unknown]
  - Mass [Recovered/Resolved]

NARRATIVE: CASE EVENT DATE: 2016
